FAERS Safety Report 15814418 (Version 1)
Quarter: 2019Q1

REPORT INFORMATION
  Report Type: Spontaneous
  Country: SE (occurrence: SE)
  Receive Date: 20190111
  Receipt Date: 20190111
  Transmission Date: 20190417
  Serious: Yes (Hospitalization)
  Sender: FDA-Public Use
  Company Number: SE-PFIZER INC-2019014670

PATIENT
  Age: 90 Year
  Sex: Male

DRUGS (11)
  1. STESOLID [Suspect]
     Active Substance: DIAZEPAM
     Indication: JOINT DISLOCATION
     Dosage: UNK
     Dates: start: 20181126, end: 20181126
  2. MORPHINE SULFATE. [Suspect]
     Active Substance: MORPHINE SULFATE
     Indication: JOINT DISLOCATION
     Dosage: UNK
     Dates: start: 20181126, end: 20181126
  3. GLYTRIN [GLYCERYL TRINITRATE] [Concomitant]
  4. PROPYLESS [Concomitant]
  5. BETOLVIDON [Concomitant]
     Active Substance: CYANOCOBALAMIN
  6. MOVICOL [Concomitant]
     Active Substance: POLYETHYLENE GLYCOL 3350\POTASSIUM CHLORIDE\SODIUM BICARBONATE\SODIUM CHLORIDE
  7. ALVEDON [Concomitant]
     Active Substance: ACETAMINOPHEN
  8. EFFORTIL [Concomitant]
     Active Substance: ETILEFRINE HYDROCHLORIDE
  9. FOLACIN [FOLIC ACID] [Concomitant]
     Active Substance: FOLIC ACID
  10. SIMVASTATIN. [Concomitant]
     Active Substance: SIMVASTATIN
  11. WARAN [Concomitant]
     Active Substance: WARFARIN SODIUM

REACTIONS (1)
  - Fatigue [Recovered/Resolved]

NARRATIVE: CASE EVENT DATE: 20181127
